FAERS Safety Report 7078734-2 (Version None)
Quarter: 2010Q4

REPORT INFORMATION
  Report Type: 
  Country: None (occurrence: None)
  Receive Date: 20101102
  Receipt Date: 20101024
  Transmission Date: 20110411
  Serious: Yes (Other)
  Sender: FDA-Public Use
  Company Number: US-PFIZER INC-2010135807

PATIENT
  Age: 24 Year
  Sex: Female

DRUGS (1)
  1. DEPO-PROVERA [Suspect]

REACTIONS (4)
  - BLOOD PHOSPHORUS DECREASED [None]
  - OSTEOMALACIA [None]
  - OSTEOPOROSIS [None]
  - VITAMIN D DEFICIENCY [None]
